FAERS Safety Report 8380711-6 (Version None)
Quarter: 2012Q2

REPORT INFORMATION
  Report Type: 
  Country: None (occurrence: None)
  Receive Date: 20120523
  Receipt Date: 20120516
  Transmission Date: 20120825
  Serious: Yes (Hospitalization)
  Sender: FDA-Public Use
  Company Number: PHHO2012FR000516

PATIENT
  Sex: Female
  Weight: 80 kg

DRUGS (8)
  1. BLINDED ALISKIREN [Suspect]
     Indication: CARDIAC FAILURE
     Dosage: CODE NOT BROKEN
     Route: 048
     Dates: start: 20100614, end: 20111221
  2. DIGOXIN [Concomitant]
     Indication: CARDIAC FAILURE CHRONIC
     Dosage: 0.25 MG, QD
     Route: 048
     Dates: start: 20040507, end: 20111221
  3. BLINDED NO TREATMENT RECEIVED [Suspect]
     Indication: CARDIAC FAILURE
     Dosage: CODE NOT BROKEN
     Route: 048
     Dates: start: 20100614, end: 20111221
  4. ENALAPRIL MALEATE [Suspect]
     Indication: CARDIAC FAILURE
     Dosage: CODE NOT BROKEN
     Route: 048
     Dates: start: 20100614, end: 20111221
  5. FUROSEMIDE [Suspect]
     Indication: CARDIAC FAILURE
     Dosage: 40 MG, QD
     Route: 048
     Dates: start: 20101207, end: 20111221
  6. FLUINDIONE [Concomitant]
     Indication: PULMONARY EMBOLISM
     Dosage: 20 MG, QD
     Route: 048
     Dates: start: 20040505, end: 20111221
  7. SPIRONOLACTONE [Suspect]
     Indication: CARDIAC FAILURE CHRONIC
     Dosage: 25 MG, QD
     Route: 048
     Dates: start: 20040505, end: 20111221
  8. CARVEDILOL [Concomitant]
     Indication: CARDIAC FAILURE
     Dosage: 6.25 MG, UNK
     Dates: start: 20110117, end: 20111221

REACTIONS (3)
  - PYELONEPHRITIS [None]
  - RENAL FAILURE ACUTE [None]
  - NEPHROLITHIASIS [None]
